FAERS Safety Report 19421654 (Version 1)
Quarter: 2021Q2

REPORT INFORMATION
  Report Type: Spontaneous
  Country: US (occurrence: US)
  Receive Date: 20210616
  Receipt Date: 20210616
  Transmission Date: 20210717
  Serious: Yes (Hospitalization)
  Sender: FDA-Public Use
  Company Number: US-JNJFOC-20210614247

PATIENT
  Sex: Female

DRUGS (1)
  1. TYLENOL PM [Suspect]
     Active Substance: ACETAMINOPHEN\DIPHENHYDRAMINE
     Indication: SLEEP DISORDER THERAPY
     Dosage: ONE DOSE ONCE A DAY
     Route: 065

REACTIONS (3)
  - Product use in unapproved indication [Unknown]
  - Movement disorder [Recovered/Resolved]
  - Aphasia [Recovered/Resolved]
